FAERS Safety Report 22054357 (Version 1)
Quarter: 2023Q1

REPORT INFORMATION
  Report Type: Spontaneous
  Country: US (occurrence: US)
  Receive Date: 20230302
  Receipt Date: 20230302
  Transmission Date: 20230418
  Serious: No
  Sender: FDA-Public Use
  Company Number: US-NOVOPROD-1004725

PATIENT
  Age: 58 Year
  Sex: Female

DRUGS (1)
  1. SAXENDA [Suspect]
     Active Substance: LIRAGLUTIDE
     Indication: Weight control
     Dosage: 1.8 MG
     Route: 058
     Dates: start: 20220601

REACTIONS (8)
  - Tremor [Unknown]
  - Palpitations [Unknown]
  - Dry mouth [Unknown]
  - Taste disorder [Unknown]
  - Peripheral swelling [Unknown]
  - Vomiting [Unknown]
  - Nausea [Unknown]
  - Constipation [Unknown]

NARRATIVE: CASE EVENT DATE: 20220706
